FAERS Safety Report 7868976 (Version 3)
Quarter: 2014Q1

REPORT INFORMATION
  Report Type: Spontaneous
  Country: US (occurrence: US)
  Receive Date: 20110324
  Receipt Date: 20140203
  Transmission Date: 20141002
  Serious: Yes (Hospitalization)
  Sender: FDA-Public Use
  Company Number: US-BAYER-2011-023500

PATIENT
  Age: 28 Year
  Sex: Female
  Weight: 61.22 kg

DRUGS (10)
  1. YAZ [Suspect]
     Indication: CONTRACEPTION
     Dosage: UNK
     Dates: start: 200706, end: 200712
  2. RANITIDINE [Concomitant]
     Dosage: 150 MG, BID
     Route: 048
  3. DICYCLOMINE [Concomitant]
     Dosage: 10 MG, UNK
  4. HYDROCODONE W/APAP [Concomitant]
     Dosage: 7.5 MG/750 MG
  5. PROMETHAZINE [Concomitant]
     Dosage: 25 MG, UNK
  6. BENTYL [Concomitant]
     Dosage: 10 MG, TID
     Route: 048
  7. PREVACID [Concomitant]
     Dosage: 30 MG, UNK
     Route: 048
     Dates: start: 20080102
  8. OMEPRAZOLE [Concomitant]
     Dosage: 40 MG, QD
     Route: 048
     Dates: start: 20080102
  9. VICODIN ES [Concomitant]
     Dosage: UNK UNK, TID
     Route: 048
  10. PHENERGAN [Concomitant]
     Dosage: 25 MG, BID
     Route: 048
     Dates: start: 20080102

REACTIONS (12)
  - Cholecystitis acute [None]
  - Gallbladder disorder [None]
  - Pain [None]
  - Medical diet [None]
  - Scar [None]
  - Abdominal distension [None]
  - Dyspepsia [None]
  - Constipation [None]
  - Diarrhoea [None]
  - Anxiety [None]
  - Depression [None]
  - Injury [None]
